FAERS Safety Report 11746538 (Version 2)
Quarter: 2015Q4

REPORT INFORMATION
  Report Type: Spontaneous
  Country: NL (occurrence: NL)
  Receive Date: 20151117
  Receipt Date: 20151119
  Transmission Date: 20160304
  Serious: Yes (Other)
  Sender: FDA-Public Use
  Company Number: NL-JNJFOC-20151112610

PATIENT

DRUGS (30)
  1. DOXORUBICIN HYDROCHLORIDE. [Suspect]
     Active Substance: DOXORUBICIN HYDROCHLORIDE
     Indication: LYMPHOMA
     Dosage: MEDIAN DOSE 255 MG/M2
     Route: 065
  2. DOXORUBICIN HYDROCHLORIDE. [Suspect]
     Active Substance: DOXORUBICIN HYDROCHLORIDE
     Indication: LEUKAEMIA
     Dosage: MEDIAN DOSE 255 MG/M2
     Route: 065
  3. DOXORUBICIN HYDROCHLORIDE. [Suspect]
     Active Substance: DOXORUBICIN HYDROCHLORIDE
     Indication: HODGKIN^S DISEASE
     Dosage: MEDIAN DOSE 255 MG/M2
     Route: 065
  4. DAUNORUBICIN [Suspect]
     Active Substance: DAUNORUBICIN
     Indication: LEUKAEMIA
     Dosage: MEDIAN DOSE OF 111 MG/M2
     Route: 065
  5. DOXORUBICIN HYDROCHLORIDE. [Suspect]
     Active Substance: DOXORUBICIN HYDROCHLORIDE
     Indication: BONE NEOPLASM
     Dosage: MEDIAN DOSE 255 MG/M2
     Route: 065
  6. DOXORUBICIN HYDROCHLORIDE. [Suspect]
     Active Substance: DOXORUBICIN HYDROCHLORIDE
     Indication: BRAIN NEOPLASM
     Dosage: MEDIAN DOSE 255 MG/M2
     Route: 065
  7. DOXORUBICIN [Suspect]
     Active Substance: DOXORUBICIN
     Indication: NEOPLASM MALIGNANT
     Dosage: MEDIAN DOSE 255 MG/M2
     Route: 065
  8. DOXORUBICIN [Suspect]
     Active Substance: DOXORUBICIN
     Indication: ACUTE LYMPHOCYTIC LEUKAEMIA
     Dosage: MEDIAN DOSE 255 MG/M2
     Route: 065
  9. DAUNORUBICIN [Suspect]
     Active Substance: DAUNORUBICIN
     Indication: NEUROBLASTOMA
     Dosage: MEDIAN DOSE OF 111 MG/M2
     Route: 065
  10. DOXORUBICIN HYDROCHLORIDE. [Suspect]
     Active Substance: DOXORUBICIN HYDROCHLORIDE
     Indication: RENAL NEOPLASM
     Dosage: MEDIAN DOSE 255 MG/M2
     Route: 065
  11. DOXORUBICIN HYDROCHLORIDE. [Suspect]
     Active Substance: DOXORUBICIN HYDROCHLORIDE
     Indication: NEUROBLASTOMA
     Dosage: MEDIAN DOSE 255 MG/M2
     Route: 065
  12. DAUNORUBICIN [Suspect]
     Active Substance: DAUNORUBICIN
     Indication: SOFT TISSUE SARCOMA
     Dosage: MEDIAN DOSE OF 111 MG/M2
     Route: 065
  13. DOXORUBICIN HYDROCHLORIDE. [Suspect]
     Active Substance: DOXORUBICIN HYDROCHLORIDE
     Indication: SOFT TISSUE SARCOMA
     Dosage: MEDIAN DOSE 255 MG/M2
     Route: 065
  14. DOXORUBICIN [Suspect]
     Active Substance: DOXORUBICIN
     Indication: LYMPHOMA
     Dosage: MEDIAN DOSE 255 MG/M2
     Route: 065
  15. DAUNORUBICIN [Suspect]
     Active Substance: DAUNORUBICIN
     Indication: HODGKIN^S DISEASE
     Dosage: MEDIAN DOSE OF 111 MG/M2
     Route: 065
  16. DOXORUBICIN [Suspect]
     Active Substance: DOXORUBICIN
     Indication: BONE NEOPLASM
     Dosage: MEDIAN DOSE 255 MG/M2
     Route: 065
  17. DOXORUBICIN [Suspect]
     Active Substance: DOXORUBICIN
     Indication: SOFT TISSUE SARCOMA
     Dosage: MEDIAN DOSE 255 MG/M2
     Route: 065
  18. DOXORUBICIN [Suspect]
     Active Substance: DOXORUBICIN
     Indication: NEUROBLASTOMA
     Dosage: MEDIAN DOSE 255 MG/M2
     Route: 065
  19. DAUNORUBICIN [Suspect]
     Active Substance: DAUNORUBICIN
     Indication: NEOPLASM MALIGNANT
     Dosage: MEDIAN DOSE OF 111 MG/M2
     Route: 065
  20. DAUNORUBICIN [Suspect]
     Active Substance: DAUNORUBICIN
     Indication: LYMPHOMA
     Dosage: MEDIAN DOSE OF 111 MG/M2
     Route: 065
  21. DOXORUBICIN HYDROCHLORIDE. [Suspect]
     Active Substance: DOXORUBICIN HYDROCHLORIDE
     Indication: ACUTE LYMPHOCYTIC LEUKAEMIA
     Dosage: MEDIAN DOSE 255 MG/M2
     Route: 065
  22. DOXORUBICIN [Suspect]
     Active Substance: DOXORUBICIN
     Indication: LEUKAEMIA
     Dosage: MEDIAN DOSE 255 MG/M2
     Route: 065
  23. DOXORUBICIN [Suspect]
     Active Substance: DOXORUBICIN
     Indication: RENAL NEOPLASM
     Dosage: MEDIAN DOSE 255 MG/M2
     Route: 065
  24. DAUNORUBICIN [Suspect]
     Active Substance: DAUNORUBICIN
     Indication: RENAL NEOPLASM
     Dosage: MEDIAN DOSE OF 111 MG/M2
     Route: 065
  25. DAUNORUBICIN [Suspect]
     Active Substance: DAUNORUBICIN
     Indication: ACUTE LYMPHOCYTIC LEUKAEMIA
     Dosage: MEDIAN DOSE OF 111 MG/M2
     Route: 065
  26. DOXORUBICIN HYDROCHLORIDE. [Suspect]
     Active Substance: DOXORUBICIN HYDROCHLORIDE
     Indication: NEOPLASM MALIGNANT
     Dosage: MEDIAN DOSE 255 MG/M2
     Route: 065
  27. DOXORUBICIN [Suspect]
     Active Substance: DOXORUBICIN
     Indication: HODGKIN^S DISEASE
     Dosage: MEDIAN DOSE 255 MG/M2
     Route: 065
  28. DAUNORUBICIN [Suspect]
     Active Substance: DAUNORUBICIN
     Indication: BONE NEOPLASM
     Dosage: MEDIAN DOSE OF 111 MG/M2
     Route: 065
  29. DAUNORUBICIN [Suspect]
     Active Substance: DAUNORUBICIN
     Indication: BRAIN NEOPLASM
     Dosage: MEDIAN DOSE OF 111 MG/M2
     Route: 065
  30. DOXORUBICIN [Suspect]
     Active Substance: DOXORUBICIN
     Indication: BRAIN NEOPLASM
     Dosage: MEDIAN DOSE 255 MG/M2
     Route: 065

REACTIONS (3)
  - Off label use [Unknown]
  - Product use issue [Unknown]
  - Cardiac failure [Unknown]
